FAERS Safety Report 8442913-X (Version None)
Quarter: 2012Q2

REPORT INFORMATION
  Report Type: 
  Country: None (occurrence: None)
  Receive Date: 20120615
  Receipt Date: 20120612
  Transmission Date: 20120825
  Serious: Yes (Life-Threatening, Hospitalization)
  Sender: FDA-Public Use
  Company Number: FR-B.I. PHARMACEUTICALS,INC./RIDGEFIELD-2012-FF-00608FF

PATIENT
  Sex: Female
  Weight: 66 kg

DRUGS (1)
  1. PRADAXA [Suspect]
     Indication: ATRIAL FIBRILLATION
     Dosage: 220 MG
     Route: 048
     Dates: start: 20120315, end: 20120506

REACTIONS (4)
  - GASTROINTESTINAL HAEMORRHAGE [None]
  - DRUG LEVEL INCREASED [None]
  - ANAEMIA [None]
  - SHOCK HAEMORRHAGIC [None]
